FAERS Safety Report 9272373 (Version 1)
Quarter: 2013Q2

REPORT INFORMATION
  Report Type: Spontaneous
  Country: US (occurrence: US)
  Receive Date: 20130506
  Receipt Date: 20130506
  Transmission Date: 20140414
  Serious: No
  Sender: FDA-Public Use
  Company Number: US-ASTRAZENECA-2013SE20050

PATIENT
  Age: 46 Year
  Sex: Female

DRUGS (2)
  1. PRILOSEC OTC, WILDBERRY FLAVOR [Suspect]
     Route: 048
     Dates: start: 20130321, end: 20130321
  2. AMETHYST [Concomitant]

REACTIONS (2)
  - Throat irritation [Recovered/Resolved]
  - Glossodynia [Recovered/Resolved]
